FAERS Safety Report 9458666 (Version 1)
Quarter: 2013Q3

REPORT INFORMATION
  Report Type: Spontaneous
  Country: US (occurrence: None)
  Receive Date: 20130813
  Receipt Date: 20130813
  Transmission Date: 20140515
  Serious: Yes (Other)
  Sender: FDA-Public Use
  Company Number: None

PATIENT
  Age: 25 Year
  Sex: Male
  Weight: 74.84 kg

DRUGS (1)
  1. STRATTERA [Suspect]
     Indication: ATTENTION DEFICIT/HYPERACTIVITY DISORDER
     Dosage: 10MG BID  ORAL
     Route: 048
     Dates: start: 20071115, end: 20071116

REACTIONS (5)
  - Insomnia [None]
  - Tachyphrenia [None]
  - Prostatomegaly [None]
  - Urinary retention [None]
  - Penile discharge [None]
